FAERS Safety Report 9113705 (Version 1)
Quarter: 2013Q1

REPORT INFORMATION
  Report Type: Spontaneous
  Country: US (occurrence: US)
  Receive Date: 20130201
  Receipt Date: 20130201
  Transmission Date: 20140127
  Serious: No
  Sender: FDA-Public Use
  Company Number: US-PFIZER INC-2013038674

PATIENT
  Age: 33 Year
  Sex: Male
  Weight: 86.17 kg

DRUGS (7)
  1. LYRICA [Suspect]
     Indication: NERVE INJURY
     Dosage: 75 MG, UNK
     Dates: start: 201209, end: 2012
  2. LYRICA [Suspect]
     Dosage: 150 MG, UNK
     Dates: start: 2012
  3. LYRICA [Suspect]
     Dosage: 300 MG, UNK
  4. LYRICA [Suspect]
     Dosage: 100 MG, 2X/DAY
     Dates: end: 201301
  5. GABAPENTIN [Suspect]
     Indication: NERVE INJURY
     Dosage: UNK
  6. CYMBALTA [Suspect]
     Indication: NERVE INJURY
     Dosage: 30 MG, UNK
     Dates: end: 201301
  7. VITAMIN D [Concomitant]
     Indication: VITAMIN D DEFICIENCY
     Dosage: 1000 UG, 2X/DAY

REACTIONS (8)
  - Drug ineffective [Unknown]
  - Pain in extremity [Not Recovered/Not Resolved]
  - Hypoaesthesia [Not Recovered/Not Resolved]
  - Hypersensitivity [Unknown]
  - Withdrawal syndrome [Unknown]
  - Insomnia [Unknown]
  - Malaise [Unknown]
  - Frustration [Unknown]
